FAERS Safety Report 12281882 (Version 1)
Quarter: 2016Q2

REPORT INFORMATION
  Report Type: Spontaneous
  Country: FR (occurrence: FR)
  Receive Date: 20160419
  Receipt Date: 20160419
  Transmission Date: 20160815
  Serious: Yes (Hospitalization)
  Sender: FDA-Public Use
  Company Number: FR-PFIZER INC-2016206245

PATIENT
  Age: 77 Year
  Sex: Female

DRUGS (7)
  1. ALTEISDUO [Suspect]
     Active Substance: HYDROCHLOROTHIAZIDE\OLMESARTAN MEDOXOMIL
     Indication: HYPERTENSION
     Dosage: 20MG/25 MG,(QD)
     Route: 048
     Dates: end: 20150702
  2. DULOXETINE HYDROCHLORIDE. [Suspect]
     Active Substance: DULOXETINE HYDROCHLORIDE
     Dosage: 60 MG, DAILY (QD)
     Route: 048
  3. POTASSIUM CHLORIDE. [Suspect]
     Active Substance: POTASSIUM CHLORIDE
     Dosage: UNK,600 MG, (5 TIMES PER 1WK)
     Route: 048
     Dates: end: 20150702
  4. NEBIVOLOL HYDROCHLORIDE [Suspect]
     Active Substance: NEBIVOLOL HYDROCHLORIDE
     Dosage: 5 MG, DAILY (QD)
     Route: 048
  5. VITAMIN D3 [Concomitant]
     Active Substance: CHOLECALCIFEROL
     Dosage: UNK
  6. LATANOPROST. [Suspect]
     Active Substance: LATANOPROST
     Dosage: UNK
     Route: 047
  7. ALENDRONIC ACID [Suspect]
     Active Substance: ALENDRONIC ACID
     Dosage: 70 MG, UNK, (ONCE EVERY 1 WK)
     Route: 048
     Dates: end: 20150702

REACTIONS (6)
  - Dehydration [Recovered/Resolved]
  - Hyperphosphataemia [Unknown]
  - Weight decreased [Unknown]
  - Diarrhoea [Recovered/Resolved]
  - Lipase increased [Unknown]
  - Acute kidney injury [Recovered/Resolved]

NARRATIVE: CASE EVENT DATE: 20150623
